FAERS Safety Report 5303712-0 (Version None)
Quarter: 2007Q2

REPORT INFORMATION
  Report Type: 
  Country: None (occurrence: None)
  Receive Date: 20070420
  Receipt Date: 20070412
  Transmission Date: 20071010
  Serious: Yes (Disabling, Other)
  Sender: FDA-Public Use
  Company Number: US-MERCK-0704USA02428

PATIENT
  Age: 76 Year
  Sex: Male

DRUGS (3)
  1. COSOPT [Suspect]
     Indication: GLAUCOMA
     Route: 047
     Dates: start: 20070401
  2. [THERAPY UNSPECIFIED] [Concomitant]
     Indication: GLAUCOMA
     Route: 061
  3. ALPHAGAN P [Concomitant]
     Route: 065

REACTIONS (2)
  - DEAFNESS [None]
  - INTRAOCULAR PRESSURE INCREASED [None]
